FAERS Safety Report 6275595-6 (Version None)
Quarter: 2009Q3

REPORT INFORMATION
  Report Type: 
  Country: None (occurrence: None)
  Receive Date: 20090721
  Receipt Date: 20090720
  Transmission Date: 20100115
  Serious: No
  Sender: FDA-Public Use
  Company Number: US-B.I. PHARMACEUTICALS,INC./RIDGEFIELD-2009-BP-07929BP

PATIENT
  Age: 54 Year
  Sex: Female
  Weight: 88.45 kg

DRUGS (3)
  1. SPIRIVA [Suspect]
     Indication: CHRONIC OBSTRUCTIVE PULMONARY DISEASE
     Dosage: 18 MCG
     Route: 055
     Dates: start: 20081205, end: 20090701
  2. WELLBUTRIN [Concomitant]
     Dosage: 300 MG
  3. MULTI-VITAMIN [Concomitant]
     Route: 048

REACTIONS (2)
  - NAUSEA [None]
  - VOMITING [None]
